FAERS Safety Report 8223034-8 (Version None)
Quarter: 2012Q1

REPORT INFORMATION
  Report Type: 
  Country: None (occurrence: None)
  Receive Date: 20120321
  Receipt Date: 20120307
  Transmission Date: 20120608
  Serious: Yes (Hospitalization, Other)
  Sender: FDA-Public Use
  Company Number: TR-RANBAXY-2012RR-52450

PATIENT
  Age: 9 Year
  Sex: Male

DRUGS (2)
  1. RISPERIDONE [Suspect]
     Indication: MENTAL DISORDER
  2. RISPERIDONE [Suspect]
     Indication: MENTAL RETARDATION
     Dosage: 2 MG, BID
     Route: 048

REACTIONS (2)
  - OVERDOSE [None]
  - NEUROLEPTIC MALIGNANT SYNDROME [None]
